FAERS Safety Report 23530207 (Version 1)
Quarter: 2024Q1

REPORT INFORMATION
  Report Type: Spontaneous
  Country: GB (occurrence: None)
  Receive Date: 20240216
  Receipt Date: 20240216
  Transmission Date: 20240410
  Serious: Yes (Other)
  Sender: FDA-Public Use
  Company Number: 2024A038947

PATIENT
  Age: 77 Year
  Sex: Male
  Weight: 64 kg

DRUGS (1)
  1. QUETIAPINE FUMARATE [Suspect]
     Active Substance: QUETIAPINE FUMARATE
     Indication: Dementia Alzheimer^s type
     Dosage: AT 8 PM
     Dates: start: 20240128, end: 20240202

REACTIONS (5)
  - Pruritus [Recovering/Resolving]
  - Rash [Recovering/Resolving]
  - Peripheral swelling [Recovering/Resolving]
  - Product prescribing issue [Unknown]
  - Off label use [Unknown]

NARRATIVE: CASE EVENT DATE: 20240128
